FAERS Safety Report 5384676-0 (Version None)
Quarter: 2007Q3

REPORT INFORMATION
  Report Type: 
  Country: None (occurrence: None)
  Receive Date: 20070710
  Receipt Date: 20070412
  Transmission Date: 20080115
  Serious: Yes (Hospitalization)
  Sender: FDA-Public Use
  Company Number: 2007-01093

PATIENT
  Age: 58 Year
  Sex: Female
  Weight: 73.5 kg

DRUGS (7)
  1. VELCADE [Suspect]
     Indication: MULTIPLE MYELOMA
     Dosage: 1.80 MG, INTRAVENOUS
     Route: 042
     Dates: start: 20070320, end: 20070320
  2. AVACOR [Concomitant]
  3. COUMADIN [Concomitant]
  4. TRAMADOL HCL [Concomitant]
  5. SENOKOT [Concomitant]
  6. VITAMIN B COMPLEX (PYRIDOXINE HYDROCHLORIDE, RIBOFLAVIN, CALCIUM PANTO [Concomitant]
  7. FOLIC ACID [Concomitant]

REACTIONS (1)
  - PNEUMONIA [None]
